FAERS Safety Report 7424333-X (Version None)
Quarter: 2011Q2

REPORT INFORMATION
  Report Type: 
  Country: None (occurrence: None)
  Receive Date: 20110419
  Receipt Date: 20110406
  Transmission Date: 20111010
  Serious: Yes (Other)
  Sender: FDA-Public Use
  Company Number: TW-MYLANLABS-2011S1007493

PATIENT
  Age: 44 Year
  Sex: Female

DRUGS (7)
  1. TRASTUZUMAB [Suspect]
     Indication: METASTASES TO LIVER
     Dosage: MONTHLY ADMINISTRATION
     Route: 065
  2. DOCETAXEL [Suspect]
     Indication: BREAST CANCER
     Route: 065
  3. EPIRUBICIN [Suspect]
     Indication: BREAST CANCER
     Route: 065
  4. TRASTUZUMAB [Suspect]
     Route: 065
  5. TRASTUZUMAB [Suspect]
     Route: 065
  6. LAPATINIB [Suspect]
     Indication: METASTASES TO LIVER
     Route: 065
  7. TRASTUZUMAB [Suspect]
     Indication: BREAST CANCER
     Dosage: MONTHLY ADMINISTRATION
     Route: 065

REACTIONS (1)
  - NODULAR REGENERATIVE HYPERPLASIA [None]
